FAERS Safety Report 9571520 (Version 1)
Quarter: 2013Q4

REPORT INFORMATION
  Report Type: Spontaneous
  Country: SE (occurrence: SE)
  Receive Date: 20131001
  Receipt Date: 20131001
  Transmission Date: 20140711
  Serious: Yes (Other)
  Sender: FDA-Public Use
  Company Number: SE-ASTRAZENECA-2013SE71095

PATIENT
  Age: 21632 Day
  Sex: Female

DRUGS (5)
  1. SEROQUEL [Suspect]
     Route: 048
     Dates: start: 20110901, end: 201302
  2. SEROQUEL [Suspect]
     Route: 048
  3. PROPAVAN [Suspect]
     Route: 065
     Dates: start: 20120430, end: 20121217
  4. CIPRALEX [Concomitant]
  5. IMOVANE [Concomitant]

REACTIONS (1)
  - Bone disorder [Not Recovered/Not Resolved]
